FAERS Safety Report 8799926 (Version 1)
Quarter: 2012Q4

REPORT INFORMATION
  Report Type: Spontaneous
  Country: US (occurrence: None)
  Receive Date: 20120918
  Receipt Date: 20120918
  Transmission Date: 20130627
  Serious: Yes (Other)
  Sender: FDA-Public Use
  Company Number: None

PATIENT
  Age: 87 Year
  Sex: Female

DRUGS (1)
  1. JAKAFI [Suspect]
     Indication: MYELOMA
     Dosage: 15mg bid po
     Route: 048
     Dates: start: 20120820

REACTIONS (2)
  - Dizziness [None]
  - Vision blurred [None]
